FAERS Safety Report 6624788-4 (Version None)
Quarter: 2010Q1

REPORT INFORMATION
  Report Type: 
  Country: None (occurrence: None)
  Receive Date: 20100223
  Receipt Date: 20091216
  Transmission Date: 20100710
  Serious: Yes (Other)
  Sender: FDA-Public Use
  Company Number: 8054974

PATIENT
  Sex: Female

DRUGS (3)
  1. CERTOLIZUMAB PEGOL (UCB, INC) [Suspect]
     Dosage: 400 MG SUBCUTANEOUS; SEE IMAGE
     Route: 058
     Dates: start: 20090820
  2. CERTOLIZUMAB PEGOL (UCB, INC) [Suspect]
     Dosage: 400 MG SUBCUTANEOUS; SEE IMAGE
     Route: 058
     Dates: start: 20090820
  3. CERTOLIZUMAB PEGOL (UCB, INC) [Suspect]

REACTIONS (3)
  - ABDOMINAL PAIN [None]
  - CONDITION AGGRAVATED [None]
  - CONSTIPATION [None]
